FAERS Safety Report 24451285 (Version 2)
Quarter: 2025Q2

REPORT INFORMATION
  Report Type: Spontaneous
  Country: JP (occurrence: JP)
  Receive Date: 20241017
  Receipt Date: 20250403
  Transmission Date: 20250717
  Serious: Yes (Hospitalization)
  Sender: ELI LILLY AND CO
  Company Number: JP-ELI_LILLY_AND_COMPANY-JP202410007533

PATIENT
  Age: 70 Year
  Sex: Female
  Weight: 55 kg

DRUGS (4)
  1. RETEVMO [Suspect]
     Active Substance: SELPERCATINIB
     Indication: Colon cancer
     Dosage: 320 MG, DAILY
     Route: 048
     Dates: start: 20240910, end: 20240930
  2. RETEVMO [Suspect]
     Active Substance: SELPERCATINIB
     Dosage: 80 MG, DAILY
     Route: 048
     Dates: start: 20241029, end: 20241111
  3. RETEVMO [Suspect]
     Active Substance: SELPERCATINIB
     Dosage: 160 MG, DAILY
     Route: 048
     Dates: start: 20241112, end: 20241209
  4. RETEVMO [Suspect]
     Active Substance: SELPERCATINIB
     Dosage: 240 MG, DAILY
     Route: 048
     Dates: start: 20241210, end: 20250203

REACTIONS (3)
  - Eastern Cooperative Oncology Group performance status worsened [Unknown]
  - Neutropenia [Unknown]
  - Dermatitis allergic [Unknown]

NARRATIVE: CASE EVENT DATE: 20241001
